FAERS Safety Report 7723785-5 (Version None)
Quarter: 2011Q3

REPORT INFORMATION
  Report Type: 
  Country: None (occurrence: None)
  Receive Date: 20110901
  Receipt Date: 20110826
  Transmission Date: 20111222
  Serious: Yes (Hospitalization)
  Sender: FDA-Public Use
  Company Number: PHEH2011US02751

PATIENT
  Sex: Female
  Weight: 65 kg

DRUGS (1)
  1. EXJADE [Suspect]
     Indication: APLASTIC ANAEMIA
     Dosage: 1500 MG, QD
     Route: 048
     Dates: start: 20110701

REACTIONS (2)
  - UPPER RESPIRATORY TRACT INFECTION [None]
  - SERUM FERRITIN INCREASED [None]
